FAERS Safety Report 8603656-2 (Version None)
Quarter: 2012Q3

REPORT INFORMATION
  Report Type: 
  Country: None (occurrence: None)
  Receive Date: 20120817
  Receipt Date: 20120709
  Transmission Date: 20120928
  Serious: No
  Sender: FDA-Public Use
  Company Number: US-ASTRAZENECA-2010SE54701

PATIENT
  Age: 61 Year
  Sex: Female
  Weight: 81.6 kg

DRUGS (23)
  1. LORAZEPAM [Concomitant]
     Indication: ANXIETY
  2. ATIVAN [Concomitant]
     Indication: OBSESSIVE-COMPULSIVE DISORDER
  3. SEROQUEL [Suspect]
     Route: 048
     Dates: start: 20100101, end: 20100801
  4. SEROQUEL [Suspect]
     Route: 048
     Dates: start: 20110601
  5. TRICOR [Concomitant]
     Indication: HYPERCHOLESTEROLAEMIA
  6. PROGESTERONE [Concomitant]
  7. SEROQUEL [Suspect]
     Indication: SLEEP DISORDER
     Route: 048
  8. SYNTHROID [Concomitant]
  9. SEROQUEL [Suspect]
     Indication: OBSESSIVE-COMPULSIVE DISORDER
     Route: 048
  10. SEROQUEL [Suspect]
     Route: 048
     Dates: start: 20100101, end: 20100801
  11. SEROQUEL [Suspect]
     Route: 048
     Dates: start: 20100101, end: 20100801
  12. SEROQUEL [Suspect]
     Dosage: 2 TABLETS AT NIGHT
     Route: 048
     Dates: start: 20100312
  13. SEROQUEL [Suspect]
     Dosage: 2 TABLETS AT NIGHT
     Route: 048
     Dates: start: 20100312
  14. SEROQUEL [Suspect]
     Route: 048
     Dates: start: 20110601
  15. SEROQUEL [Suspect]
     Route: 048
     Dates: start: 20100801, end: 20110601
  16. THYROID MEDICATION [Concomitant]
     Indication: THYROID DISORDER
  17. SEROQUEL [Suspect]
     Indication: DEPRESSION
     Route: 048
  18. SEROQUEL [Suspect]
     Dosage: 2 TABLETS AT NIGHT
     Route: 048
     Dates: start: 20100312
  19. SEROQUEL [Suspect]
     Route: 048
     Dates: start: 20110601
  20. SEROQUEL [Suspect]
     Route: 048
     Dates: start: 20100801, end: 20110601
  21. SEROQUEL [Suspect]
     Route: 048
     Dates: start: 20100801, end: 20110601
  22. CELEXA [Concomitant]
     Indication: OBSESSIVE-COMPULSIVE DISORDER
  23. ESTRADIOL [Concomitant]

REACTIONS (9)
  - TACHYPHRENIA [None]
  - SOMNOLENCE [None]
  - OFF LABEL USE [None]
  - APATHY [None]
  - HEAD TITUBATION [None]
  - WITHDRAWAL SYNDROME [None]
  - WEIGHT DECREASED [None]
  - INTENTIONAL DRUG MISUSE [None]
  - INFLUENZA [None]
